FAERS Safety Report 5976728-9 (Version None)
Quarter: 2008Q4

REPORT INFORMATION
  Report Type: 
  Country: None (occurrence: None)
  Receive Date: 20081201
  Receipt Date: 20081201
  Transmission Date: 20090506
  Serious: No
  Sender: FDA-Public Use
  Company Number: None

PATIENT
  Sex: Female

DRUGS (2)
  1. BUDIPRIN [Suspect]
     Dosage: 150 XL QD PO
     Route: 048
     Dates: start: 20081001
  2. BUPROPRIONE [Suspect]

REACTIONS (2)
  - DRUG EFFECT DECREASED [None]
  - THERAPEUTIC RESPONSE UNEXPECTED WITH DRUG SUBSTITUTION [None]
